FAERS Safety Report 24153762 (Version 1)
Quarter: 2024Q3

REPORT INFORMATION
  Report Type: Spontaneous
  Country: PT (occurrence: PT)
  Receive Date: 20240730
  Receipt Date: 20240730
  Transmission Date: 20241016
  Serious: Yes (Hospitalization)
  Sender: FOUNDATION CONSUMER HEALTHCARE
  Company Number: PT-INFARMED-J202407-193

PATIENT
  Age: 47 Year
  Sex: Female

DRUGS (4)
  1. LEVONORGESTREL [Suspect]
     Active Substance: LEVONORGESTREL
     Indication: Post coital contraception
     Dosage: SINGLE DOSE
     Dates: start: 20240510
  2. IMURAN [Concomitant]
     Active Substance: AZATHIOPRINE
     Route: 048
  3. Vitod? [Concomitant]
     Route: 048
  4. RIVOTRIL [Concomitant]
     Active Substance: CLONAZEPAM
     Route: 048

REACTIONS (3)
  - Hemiplegia [None]
  - Multiple sclerosis relapse [None]
  - Muscular weakness [None]

NARRATIVE: CASE EVENT DATE: 20240510
